FAERS Safety Report 9137092 (Version 3)
Quarter: 2013Q1

REPORT INFORMATION
  Report Type: Report from Study
  Country: US (occurrence: US)
  Receive Date: 20130304
  Receipt Date: 20130328
  Transmission Date: 20140127
  Serious: Yes (Hospitalization)
  Sender: FDA-Public Use
  Company Number: US-PFIZER INC-2012318718

PATIENT
  Age: 88 Year
  Sex: Male
  Weight: 63.04 kg

DRUGS (8)
  1. TORISEL [Suspect]
     Indication: HEPATIC CANCER METASTATIC
     Dosage: 25 MG, CYCLIC (DAY 1, 8, 15 EVERY 21 DAYS)
     Route: 042
     Dates: start: 20121106, end: 20121129
  2. TORISEL [Suspect]
     Dosage: 20 MG, CYCLIC (DAY 1, 8, 15 EVERY 21 DAYS)
     Route: 042
     Dates: start: 20121130, end: 20121207
  3. SPIRONOLACTONE [Concomitant]
     Dosage: 25 MG, 2X/DAY (2 IN A.M., 1 IN P.M.)
     Route: 048
     Dates: start: 20110914
  4. ULTRAM [Concomitant]
     Indication: PAIN
     Dosage: 50 MG, EVERY 4 HOURS AS NEEDED
     Route: 048
     Dates: start: 20111228
  5. FUROSEMIDE [Concomitant]
     Dosage: 40 MG, 1X/DAY EVERY A.M.
     Route: 048
     Dates: start: 20120624
  6. LOMOTIL [Concomitant]
     Indication: DIARRHOEA
     Dosage: 1-2 (ATROPINE SULFATE 0.025MG/DIPHENOXYLATE HYDROCHLORIDE 2.5MG) EVERY 4 HOURS AS NEEDED
     Route: 048
     Dates: start: 20111228
  7. PROMETHAZINE [Concomitant]
     Indication: NAUSEA
     Dosage: 12.5 MG, EVERY 6 HOURS AS NEEDED
     Route: 048
     Dates: start: 20121113
  8. PROMETHAZINE [Concomitant]
     Indication: VOMITING

REACTIONS (2)
  - Coagulopathy [Recovered/Resolved]
  - Thrombocytopenia [Recovered/Resolved]
